FAERS Safety Report 20728233 (Version 3)
Quarter: 2022Q3

REPORT INFORMATION
  Report Type: Report from Study
  Country: EG (occurrence: None)
  Receive Date: 20220420
  Receipt Date: 20220714
  Transmission Date: 20221027
  Serious: Yes (Other)
  Sender: FDA-Public Use
  Company Number: EG-Merck Healthcare KGaA-9313336

PATIENT
  Age: 38 Year
  Sex: Female

DRUGS (3)
  1. REBIF [Suspect]
     Active Substance: INTERFERON BETA-1A
     Indication: Multiple sclerosis
     Route: 058
     Dates: start: 20210827
  2. REBIF [Suspect]
     Active Substance: INTERFERON BETA-1A
     Dosage: REDUCED DOSES FOR TWO WEEKS
     Dates: start: 202204, end: 2022
  3. REBIF [Suspect]
     Active Substance: INTERFERON BETA-1A
     Dates: start: 2022

REACTIONS (2)
  - Crohn^s disease [Unknown]
  - Meniere^s disease [Not Recovered/Not Resolved]

NARRATIVE: CASE EVENT DATE: 20220329
